FAERS Safety Report 8204593-8 (Version None)
Quarter: 2012Q1

REPORT INFORMATION
  Report Type: 
  Country: None (occurrence: None)
  Receive Date: 20120313
  Receipt Date: 20120309
  Transmission Date: 20120608
  Serious: Yes (Hospitalization)
  Sender: FDA-Public Use
  Company Number: IT-PFIZER INC-2011273959

PATIENT
  Age: 84 Year
  Sex: Female

DRUGS (6)
  1. PROMAZINE HYDROCHLORIDE [Suspect]
     Indication: PSYCHOMOTOR HYPERACTIVITY
     Dosage: 10 GTT, DAILY
     Route: 048
     Dates: start: 20101008, end: 20111008
  2. NORVASC [Suspect]
     Indication: HYPERTENSION
     Dosage: 5 MG, DAILY
     Route: 048
     Dates: start: 20101008, end: 20111008
  3. ASPIRIN [Concomitant]
  4. TRAMADOL HCL [Suspect]
     Indication: OSTEOARTHRITIS
     Dosage: 1 DF, AS NEEDED
     Route: 048
     Dates: start: 20101008, end: 20111008
  5. OMEPRAZOLE [Concomitant]
  6. AMILORIDE HCL AND HYDROCHLOROTHIAZIDE [Concomitant]

REACTIONS (2)
  - LOSS OF CONSCIOUSNESS [None]
  - LONG QT SYNDROME [None]
